FAERS Safety Report 22090989 (Version 1)
Quarter: 2023Q1

REPORT INFORMATION
  Report Type: Report from Study
  Country: US (occurrence: US)
  Receive Date: 20230314
  Receipt Date: 20230314
  Transmission Date: 20230418
  Serious: Yes (Other)
  Sender: FDA-Public Use
  Company Number: US-002147023-NVSC2023US052847

PATIENT
  Sex: Female

DRUGS (1)
  1. ENTRESTO [Suspect]
     Active Substance: SACUBITRIL\VALSARTAN
     Indication: Product used for unknown indication
     Dosage: 1 DOSAGE FORM, BID
     Route: 048
     Dates: start: 202208

REACTIONS (7)
  - Cardiac failure [Unknown]
  - Palpitations [Unknown]
  - Blood pressure fluctuation [Unknown]
  - Middle insomnia [Unknown]
  - Dizziness [Unknown]
  - Chest discomfort [Unknown]
  - Product use issue [Unknown]
